FAERS Safety Report 4289169-X (Version None)
Quarter: 2004Q1

REPORT INFORMATION
  Report Type: 
  Country: None (occurrence: None)
  Receive Date: 20040206
  Receipt Date: 20040121
  Transmission Date: 20041129
  Serious: Yes (Hospitalization)
  Sender: FDA-Public Use
  Company Number: FR-JNJFOC-20040104049

PATIENT
  Age: 54 Year
  Sex: Female

DRUGS (2)
  1. REMICADE [Suspect]
     Indication: RHEUMATOID ARTHRITIS
     Dosage: INTRAVENOUS
     Route: 042
     Dates: start: 20021201
  2. METHOTREXATE [Concomitant]

REACTIONS (9)
  - FATIGUE [None]
  - HAEMOGLOBIN DECREASED [None]
  - HYPERHIDROSIS [None]
  - INFLAMMATION [None]
  - LEUKOPENIA [None]
  - PLATELET COUNT DECREASED [None]
  - PYREXIA [None]
  - SPLENOMEGALY [None]
  - VISCERAL LEISHMANIASIS [None]
